FAERS Safety Report 11363223 (Version 1)
Quarter: 2015Q3

REPORT INFORMATION
  Report Type: Report from Study
  Country: US (occurrence: US)
  Receive Date: 20150811
  Receipt Date: 20150811
  Transmission Date: 20151125
  Serious: No
  Sender: FDA-Public Use
  Company Number: PHEH2015US014922

PATIENT
  Sex: Female
  Weight: 67 kg

DRUGS (3)
  1. PROVIGIL [Concomitant]
     Active Substance: MODAFINIL
     Route: 065
  2. GILENYA [Suspect]
     Active Substance: FINGOLIMOD HYDROCHLORIDE
     Indication: RELAPSING-REMITTING MULTIPLE SCLEROSIS
     Dosage: 0.5 MG, QD
     Route: 048
     Dates: start: 20130221
  3. AMITRIPTYLINE HCL [Concomitant]
     Active Substance: AMITRIPTYLINE
     Indication: SLEEP DISORDER
     Route: 065

REACTIONS (24)
  - Sedation [Unknown]
  - Myalgia [Unknown]
  - Muscular weakness [Unknown]
  - Thinking abnormal [Unknown]
  - Muscle spasms [Unknown]
  - Visual acuity reduced [Unknown]
  - Micturition urgency [Unknown]
  - Abdominal discomfort [Unknown]
  - Hypoaesthesia [Unknown]
  - Fatigue [Unknown]
  - Memory impairment [Unknown]
  - Temperature intolerance [Unknown]
  - Headache [Unknown]
  - Anxiety [Unknown]
  - Vision blurred [Unknown]
  - Urinary retention [Unknown]
  - Fall [Unknown]
  - Affective disorder [Unknown]
  - Progressive multiple sclerosis [Unknown]
  - Allodynia [Unknown]
  - Balance disorder [Unknown]
  - Urinary hesitation [Unknown]
  - Multiple sclerosis relapse [Unknown]
  - Pollakiuria [Unknown]
